FAERS Safety Report 6768297-0 (Version None)
Quarter: 2010Q2

REPORT INFORMATION
  Report Type: 
  Country: None (occurrence: None)
  Receive Date: 20100614
  Receipt Date: 20100604
  Transmission Date: 20101027
  Serious: Yes (Other)
  Sender: FDA-Public Use
  Company Number: US-BIOGENIDEC-2010BI018503

PATIENT
  Age: 49 Year
  Sex: Female

DRUGS (2)
  1. AVONEX [Suspect]
     Indication: MULTIPLE SCLEROSIS
     Route: 030
     Dates: start: 20010801, end: 20030101
  2. AVONEX [Suspect]
     Route: 030
     Dates: start: 20030101

REACTIONS (11)
  - BLOOD PRESSURE DECREASED [None]
  - BURNING SENSATION [None]
  - DECREASED APPETITE [None]
  - DIZZINESS [None]
  - FIBROMYALGIA [None]
  - HALLUCINATION [None]
  - MULTIPLE SCLEROSIS [None]
  - RENAL FAILURE ACUTE [None]
  - SOMNOLENCE [None]
  - SWELLING [None]
  - WEIGHT DECREASED [None]
